FAERS Safety Report 5863936-0 (Version None)
Quarter: 2008Q3

REPORT INFORMATION
  Report Type: 
  Country: None (occurrence: None)
  Receive Date: 20080829
  Receipt Date: 20080819
  Transmission Date: 20090109
  Serious: Yes (Other)
  Sender: FDA-Public Use
  Company Number: US-JNJFOC-20080804830

PATIENT
  Sex: Female
  Weight: 86.18 kg

DRUGS (14)
  1. DURAGESIC-100 [Suspect]
     Indication: BACK PAIN
     Route: 062
  2. SYNTHROID [Concomitant]
     Indication: HYPOTHYROIDISM
     Route: 048
  3. HUMULIN N [Concomitant]
     Indication: DIABETES MELLITUS
     Route: 058
  4. CLONAZEPAM [Concomitant]
     Route: 048
  5. NORVASC [Concomitant]
     Indication: CARDIAC DISORDER
     Route: 048
  6. ALTACE [Concomitant]
     Indication: CARDIAC DISORDER
     Route: 048
  7. LIPITOR [Concomitant]
     Indication: BLOOD CHOLESTEROL
     Route: 048
  8. NITROLINGUAL [Concomitant]
     Indication: CARDIAC DISORDER
     Route: 048
  9. LORTAB [Concomitant]
     Indication: PAIN
     Route: 048
  10. FLOVENT [Concomitant]
     Dosage: 2 PUFFS DAILY
     Route: 055
  11. COMBIVENT [Concomitant]
     Dosage: 3 PUFFS 4 TIMES DAILY
     Route: 055
  12. ZYRTEC [Concomitant]
     Route: 048
  13. FLOVENT HFA [Concomitant]
     Route: 055
  14. ALBUTEROL [Concomitant]
     Route: 055

REACTIONS (2)
  - DRUG INEFFECTIVE [None]
  - RESORPTION BONE INCREASED [None]
